FAERS Safety Report 4350692-0 (Version None)
Quarter: 2004Q2

REPORT INFORMATION
  Report Type: 
  Country: None (occurrence: None)
  Receive Date: 20040429
  Receipt Date: 20040429
  Transmission Date: 20050107
  Serious: Yes (Hospitalization)
  Sender: FDA-Public Use
  Company Number: None

PATIENT
  Sex: Male
  Weight: 75.7507 kg

DRUGS (2)
  1. PACLITAXEL [Suspect]
     Indication: NON-SMALL CELL LUNG CANCER
     Dosage: 50 MG/M2 WEEKLY X 6 INTRAVENOUS
     Route: 042
     Dates: start: 20040329, end: 20040426
  2. CARBOPLATIN [Suspect]
     Indication: NON-SMALL CELL LUNG CANCER
     Dosage: AUC 2 WEEKLY X 6 INTRAVENOUS
     Route: 042
     Dates: start: 20040329, end: 20040426

REACTIONS (3)
  - PYREXIA [None]
  - RADIATION INJURY [None]
  - SKIN REACTION [None]
